FAERS Safety Report 5358317-2 (Version None)
Quarter: 2007Q2

REPORT INFORMATION
  Report Type: 
  Country: None (occurrence: None)
  Receive Date: 20070614
  Receipt Date: 20070614
  Transmission Date: 20071010
  Serious: Yes (Hospitalization)
  Sender: FDA-Public Use
  Company Number: None

PATIENT
  Sex: Male
  Weight: 85.7 kg

DRUGS (3)
  1. CISPLATIN [Suspect]
     Dosage: 60 MG
  2. ERBITUX [Suspect]
     Dosage: 500 MG
  3. CAMPTOSAR [Suspect]
     Dosage: 130 MG

REACTIONS (3)
  - DIARRHOEA [None]
  - FEBRILE NEUTROPENIA [None]
  - WHITE BLOOD CELL COUNT INCREASED [None]
